FAERS Safety Report 12692038 (Version 1)
Quarter: 2016Q3

REPORT INFORMATION
  Report Type: Report from Study
  Country: US (occurrence: US)
  Receive Date: 20160827
  Receipt Date: 20160827
  Transmission Date: 20161109
  Serious: Yes (Death, Hospitalization)
  Sender: FDA-Public Use
  Company Number: US-AMGEN-USASL2016111842

PATIENT
  Age: 68 Year
  Sex: Male

DRUGS (1)
  1. BLINCYTO [Suspect]
     Active Substance: BLINATUMOMAB
     Indication: LEUKAEMIA
     Dosage: UNK
     Route: 065
     Dates: end: 201608

REACTIONS (4)
  - Dyspnoea [Unknown]
  - Death [Fatal]
  - Intestinal haemorrhage [Unknown]
  - Therapy non-responder [Unknown]

NARRATIVE: CASE EVENT DATE: 20160819
